FAERS Safety Report 6881309-9 (Version None)
Quarter: 2010Q2

REPORT INFORMATION
  Report Type: 
  Country: None (occurrence: None)
  Receive Date: 20100630
  Receipt Date: 20100421
  Transmission Date: 20101027
  Serious: No
  Sender: FDA-Public Use
  Company Number: 2010-00481

PATIENT
  Age: 39 Year
  Sex: Female
  Weight: 58.9676 kg

DRUGS (2)
  1. ZICAM COLD REMEDY NASAL GEL [Suspect]
     Dosage: QD, ONE DOSE
     Dates: start: 20100421, end: 20100421
  2. SUNTHROID [Concomitant]

REACTIONS (2)
  - ANOSMIA [None]
  - NASAL DISCOMFORT [None]
